FAERS Safety Report 16485564 (Version 1)
Quarter: 2019Q2

REPORT INFORMATION
  Report Type: Spontaneous
  Country: US (occurrence: US)
  Receive Date: 20190627
  Receipt Date: 20190627
  Transmission Date: 20190711
  Serious: Yes (Other)
  Sender: FDA-Public Use
  Company Number: US-ASTRAZENECA-2019SE90406

PATIENT
  Age: 56 Year
  Sex: Female
  Weight: 61.2 kg

DRUGS (15)
  1. ALPHA LIPOIC ACID [Concomitant]
     Active Substance: .ALPHA.-LIPOIC ACID
     Indication: MITOCHONDRIAL MYOPATHY
     Route: 048
     Dates: start: 2005
  2. ASPIRIN ENTEROCOATED [Concomitant]
     Indication: CARDIAC DISORDER
     Route: 048
     Dates: start: 2002
  3. CLOPIDOGREL [Concomitant]
     Active Substance: CLOPIDOGREL BISULFATE
     Indication: CARDIAC DISORDER
     Route: 048
     Dates: start: 2002
  4. ACETYLCARNITINE [Concomitant]
     Active Substance: ACETYLCARNITINE
     Indication: MITOCHONDRIAL MYOPATHY
     Route: 048
     Dates: start: 2005
  5. GENERIC EFFEXOR ER [Concomitant]
     Indication: ANTIDEPRESSANT THERAPY
     Route: 048
  6. ZETIA [Concomitant]
     Active Substance: EZETIMIBE
     Indication: BLOOD CHOLESTEROL ABNORMAL
     Route: 048
     Dates: start: 2002
  7. METFORMIN [Concomitant]
     Active Substance: METFORMIN HYDROCHLORIDE
     Indication: DIABETES MELLITUS
     Route: 048
     Dates: start: 2002
  8. SPIRONOLACTONE. [Concomitant]
     Active Substance: SPIRONOLACTONE
     Indication: HORMONE LEVEL ABNORMAL
     Route: 048
     Dates: start: 2000
  9. LEVOTHYROXINE. [Concomitant]
     Active Substance: LEVOTHYROXINE
     Indication: AUTOIMMUNE THYROIDITIS
     Route: 048
     Dates: start: 1980
  10. ACETYLCARNITINE [Concomitant]
     Active Substance: ACETYLCARNITINE
     Indication: MITOCHONDRIAL MYOPATHY
     Route: 048
     Dates: start: 2005
  11. CRESTOR [Suspect]
     Active Substance: ROSUVASTATIN CALCIUM
     Indication: ARTERIOSCLEROSIS CORONARY ARTERY
     Route: 048
     Dates: start: 2012
  12. VISINE [Concomitant]
     Active Substance: TETRAHYDROZOLINE HYDROCHLORIDE
     Indication: DRY EYE
     Dosage: UNKNOWN
     Route: 047
  13. METOPROLOL SUCCINATE. [Suspect]
     Active Substance: METOPROLOL SUCCINATE
     Indication: CARDIAC DISORDER
     Route: 048
     Dates: start: 2002
  14. LOSARTAN. [Concomitant]
     Active Substance: LOSARTAN
     Indication: BLOOD PRESSURE ABNORMAL
     Route: 048
     Dates: start: 201810
  15. XANTAC [Concomitant]
     Indication: ABDOMINAL DISCOMFORT
     Route: 048

REACTIONS (9)
  - Ammonia increased [Unknown]
  - Myalgia [Not Recovered/Not Resolved]
  - Back pain [Unknown]
  - Chest discomfort [Unknown]
  - Pancreatitis [Recovered/Resolved]
  - Coronary artery occlusion [Unknown]
  - Deafness [Unknown]
  - Fatigue [Not Recovered/Not Resolved]
  - Intentional product misuse [Unknown]

NARRATIVE: CASE EVENT DATE: 2005
